FAERS Safety Report 12640384 (Version 1)
Quarter: 2016Q3

REPORT INFORMATION
  Report Type: Report from Study
  Country: US (occurrence: US)
  Receive Date: 20160810
  Receipt Date: 20160810
  Transmission Date: 20161109
  Serious: Yes (Life-Threatening)
  Sender: FDA-Public Use
  Company Number: US-ASTELLAS-2011000431

PATIENT
  Age: 61 Year
  Sex: Female

DRUGS (3)
  1. ERLOTINIB [Suspect]
     Active Substance: ERLOTINIB
     Indication: MALIGNANT PERITONEAL NEOPLASM
     Dosage: 75 MG, ONCE DAILY (LAST DOSE PRIOR TO SAE: 10/JAN/2011)
     Route: 048
     Dates: start: 20110103, end: 20110117
  2. GEMCITABINE [Suspect]
     Active Substance: GEMCITABINE\GEMCITABINE HYDROCHLORIDE
     Indication: MALIGNANT PERITONEAL NEOPLASM
     Dosage: 750 MG/M2, OVER 30 MIN ON DAYS 1, 8, 15, 22, 29, 36 AND 43
     Route: 042
     Dates: start: 20110103, end: 20110110
  3. VISMODEGIB [Suspect]
     Active Substance: VISMODEGIB
     Indication: MALIGNANT PERITONEAL NEOPLASM
     Dosage: 150 MG, ONCE DAILY (LAST DOSE PRIOR TO SAE: 10/JAN/2011)
     Route: 048
     Dates: start: 20110103, end: 20110117

REACTIONS (1)
  - Platelet count decreased [Recovered/Resolved]

NARRATIVE: CASE EVENT DATE: 20110117
